FAERS Safety Report 7308297-5 (Version None)
Quarter: 2011Q1

REPORT INFORMATION
  Report Type: 
  Country: None (occurrence: None)
  Receive Date: 20110223
  Receipt Date: 20110217
  Transmission Date: 20110831
  Serious: Yes (Other)
  Sender: FDA-Public Use
  Company Number: A0902063A

PATIENT
  Age: 68 Year
  Sex: Female

DRUGS (5)
  1. SPIRIVA [Concomitant]
  2. ADVAIR HFA [Suspect]
     Indication: CHRONIC OBSTRUCTIVE PULMONARY DISEASE
     Dosage: 1PUFF TWICE PER DAY
     Route: 055
     Dates: start: 20100101
  3. AMLODIPINE [Concomitant]
  4. BUPROPION [Concomitant]
  5. ASPIRIN [Concomitant]

REACTIONS (4)
  - COUGH [None]
  - DYSPNOEA [None]
  - CHOKING [None]
  - PRODUCT QUALITY ISSUE [None]
